FAERS Safety Report 6845866-0 (Version None)
Quarter: 2010Q3

REPORT INFORMATION
  Report Type: 
  Country: None (occurrence: None)
  Receive Date: 20100715
  Receipt Date: 20070829
  Transmission Date: 20110219
  Serious: No
  Sender: FDA-Public Use
  Company Number: US-PFIZER INC-2007073020

PATIENT
  Sex: Female
  Weight: 49 kg

DRUGS (2)
  1. CHANTIX [Suspect]
     Indication: SMOKING CESSATION THERAPY
     Route: 048
     Dates: start: 20070820
  2. VITAMINS [Concomitant]

REACTIONS (3)
  - ABNORMAL DREAMS [None]
  - FATIGUE [None]
  - INSOMNIA [None]
